FAERS Safety Report 6038826-3 (Version None)
Quarter: 2009Q1

REPORT INFORMATION
  Report Type: 
  Country: None (occurrence: None)
  Receive Date: 20090115
  Receipt Date: 20080812
  Transmission Date: 20090719
  Serious: No
  Sender: FDA-Public Use
  Company Number: US-BAYER-200813390BCC

PATIENT
  Sex: Female

DRUGS (2)
  1. MIDOL [Suspect]
     Indication: MIGRAINE
     Route: 048
  2. MIDOL [Suspect]
     Route: 048

REACTIONS (1)
  - MIGRAINE [None]
